FAERS Safety Report 9457647 (Version 1)
Quarter: 2013Q3

REPORT INFORMATION
  Report Type: Spontaneous
  Country: US (occurrence: US)
  Receive Date: 20130814
  Receipt Date: 20130814
  Transmission Date: 20140515
  Serious: No
  Sender: FDA-Public Use
  Company Number: US-PFIZER INC-2013233121

PATIENT
  Sex: Male

DRUGS (2)
  1. FLUCONAZOLE [Suspect]
     Dosage: UNK
  2. DIFLUCAN [Concomitant]
     Dosage: 200 MG, UNK
     Dates: end: 201308

REACTIONS (1)
  - Drug ineffective [Unknown]
